FAERS Safety Report 9485740 (Version 4)
Quarter: 2013Q4

REPORT INFORMATION
  Report Type: Spontaneous
  Country: US (occurrence: None)
  Receive Date: 20130821
  Receipt Date: 20131108
  Transmission Date: 20140711
  Serious: Yes (Hospitalization, Disabling, Other)
  Sender: FDA-Public Use
  Company Number: ACO_38017_2013

PATIENT
  Age: 66 Year
  Sex: Female
  Weight: 61.2 kg

DRUGS (21)
  1. AMPYRA [Suspect]
     Indication: GAIT DISTURBANCE
     Route: 048
     Dates: start: 201112
  2. DETROL [Concomitant]
  3. DETROL [Concomitant]
  4. EFFEXOR (VENLAFAXINE HYDROCHLORIDE) CAPSULE, 37.5 MG [Concomitant]
  5. EFFEXOR (VENLAFAXINE HYDROCHLORIDE) CAPSULE, 37.5 MG [Concomitant]
  6. MULTIVITAMINS (ASCORBIC ACID, ERGOCALCIFEROL, FOLIC ACID, NICOTINAMIDE, PANTHENOL, RETINOL, RIBOFLAVIN, THIAMINE HYDROCHLORIDE) [Concomitant]
  7. TYLENOL 8 HOUR (PARACETAMOL) TABLET, 325 MG [Concomitant]
  8. MILK OF MAGNESIA (MAGNESIUM HYDROXIDE) [Concomitant]
  9. COLACE (DOCUSATE SODIUM) CAPSULE, 100 MG [Concomitant]
  10. OMEGA 3 (FISH OIL) [Concomitant]
  11. JUVEN (ARGININE, BETA-HYDROXY-BETA-METHYLBUTYRATE, LEVOGLUTAMIDE) [Concomitant]
  12. NIACIN (NICOTINIC ACID) [Concomitant]
  13. NIACIN (NICOTINIC ACID) [Concomitant]
  14. MYRBETRIQ (MIRABEGRON) TABLET, 25 MG [Concomitant]
  15. LIORESAL (BACLOFEN) TABLET, 10 MG [Concomitant]
  16. IMODIUM A-D (LOPERAMIDE HYDORCHLORIDE) [Concomitant]
  17. ENULOSE (LACTULOSE) SOLUTION  (EXCEPT SYRUP), 10G/15 ML [Concomitant]
  18. BISCODYL (BISACODYL), 5 MG [Concomitant]
  19. ECOTRIN (ACETYLSALICYLIC ACID) TABLET, 81 MG [Concomitant]
  20. VITAMIN D3 (COLECALCIFEROL) TABLET, 2000 IU [Concomitant]
  21. RITALIN (METHYLPHENIDATE HYDROCHLORIDE) TABLET, 10 MG [Concomitant]

REACTIONS (22)
  - Muscle disorder [None]
  - Movement disorder [None]
  - Fall [None]
  - Adverse drug reaction [None]
  - Pharyngeal oedema [None]
  - Swollen tongue [None]
  - Lip swelling [None]
  - Pharyngeal oedema [None]
  - Loss of consciousness [None]
  - Concussion [None]
  - Venous insufficiency [None]
  - Renal failure chronic [None]
  - Paraparesis [None]
  - Vertigo [None]
  - Faecaloma [None]
  - Exposure to toxic agent [None]
  - Muscle spasticity [None]
  - Depression [None]
  - Urinary tract infection [None]
  - Constipation [None]
  - Rhabdomyolysis [None]
  - Muscle spasms [None]
